FAERS Safety Report 7544277-2 (Version None)
Quarter: 2011Q2

REPORT INFORMATION
  Report Type: 
  Country: None (occurrence: None)
  Receive Date: 20110613
  Receipt Date: 20071026
  Transmission Date: 20111010
  Serious: Yes (Other)
  Sender: FDA-Public Use
  Company Number: PHFR2007GB03158

PATIENT
  Sex: Female
  Weight: 70 kg

DRUGS (1)
  1. CLOZAPINE [Suspect]
     Indication: SCHIZOPHRENIA
     Dosage: 12.5MG / DAY
     Route: 048
     Dates: start: 20020529

REACTIONS (4)
  - CERVIX CARCINOMA STAGE 0 [None]
  - ABORTION SPONTANEOUS [None]
  - PREGNANCY [None]
  - CERVICAL DYSPLASIA [None]
